FAERS Safety Report 12413060 (Version 3)
Quarter: 2022Q3

REPORT INFORMATION
  Report Type: Spontaneous
  Country: JP (occurrence: JP)
  Receive Date: 20160527
  Receipt Date: 20220831
  Transmission Date: 20221027
  Serious: Yes (Other)
  Sender: FDA-Public Use
  Company Number: JP-MLMSERVICE-20160519-0283095-1

PATIENT
  Age: 22 Year
  Sex: Female

DRUGS (4)
  1. METHYLPREDNISOLONE [Suspect]
     Active Substance: METHYLPREDNISOLONE
     Indication: Systemic lupus erythematosus
     Dosage: PULSE THERAPY (1000 MG/DAY FOR 3 DAYS) CONDUCTED TWICE
  2. METHYLPREDNISOLONE [Suspect]
     Active Substance: METHYLPREDNISOLONE
     Dosage: FOUR COURSES OF 1000 MG/DAY, 3 DAYS
  3. PREDNISOLONE [Suspect]
     Active Substance: PREDNISOLONE
     Indication: Systemic lupus erythematosus
     Dosage: 30 MG, DAILY
     Route: 048
  4. TACROLIMUS [Suspect]
     Active Substance: TACROLIMUS
     Indication: Systemic lupus erythematosus
     Dosage: 2 MG, DAILY

REACTIONS (8)
  - Systemic lupus erythematosus [Unknown]
  - Disease recurrence [Unknown]
  - Thrombocytopenia [Recovered/Resolved]
  - Anaemia [Recovered/Resolved]
  - Cystitis haemorrhagic [Unknown]
  - Haemophagocytic lymphohistiocytosis [Recovered/Resolved]
  - BK virus infection [Recovered/Resolved]
  - Infection reactivation [Recovered/Resolved]
